FAERS Safety Report 15956304 (Version 4)
Quarter: 2019Q4

REPORT INFORMATION
  Report Type: Spontaneous
  Country: US (occurrence: US)
  Receive Date: 20190213
  Receipt Date: 20191120
  Transmission Date: 20200122
  Serious: Yes (Other)
  Sender: FDA-Public Use
  Company Number: US-ASTRAZENECA-2018SF13886

PATIENT
  Age: 28663 Day
  Sex: Male
  Weight: 117.5 kg

DRUGS (36)
  1. NEXIUM [Suspect]
     Active Substance: ESOMEPRAZOLE MAGNESIUM
     Indication: GASTROOESOPHAGEAL REFLUX DISEASE
     Route: 048
  2. PROTONIX [Suspect]
     Active Substance: PANTOPRAZOLE SODIUM
     Route: 065
     Dates: start: 20160811, end: 20160813
  3. ALLEGRA [Concomitant]
     Active Substance: FEXOFENADINE HYDROCHLORIDE
  4. AXID [Concomitant]
     Active Substance: NIZATIDINE
  5. LOVASTATIN. [Concomitant]
     Active Substance: LOVASTATIN
  6. PREVACID [Suspect]
     Active Substance: LANSOPRAZOLE
     Route: 065
  7. PREVACID 24 HR [Suspect]
     Active Substance: LANSOPRAZOLE
     Route: 048
  8. PIOGLITAZONE. [Concomitant]
     Active Substance: PIOGLITAZONE
  9. VIAGRA [Concomitant]
     Active Substance: SILDENAFIL CITRATE
  10. METFORMIN [Concomitant]
     Active Substance: METFORMIN HYDROCHLORIDE
  11. NEXIUM [Suspect]
     Active Substance: ESOMEPRAZOLE MAGNESIUM
     Indication: GASTROOESOPHAGEAL REFLUX DISEASE
     Route: 048
     Dates: start: 20040218
  12. ASPIRIN. [Concomitant]
     Active Substance: ASPIRIN
  13. POTASSIUM CHLORIDE. [Concomitant]
     Active Substance: POTASSIUM CHLORIDE
  14. TORSEMIDE. [Concomitant]
     Active Substance: TORSEMIDE
  15. AZITHROMYCIN ANHYDROUS. [Concomitant]
     Active Substance: AZITHROMYCIN ANHYDROUS
  16. MEXITIL [Concomitant]
     Active Substance: MEXILETINE HYDROCHLORIDE
  17. NEXIUM [Suspect]
     Active Substance: ESOMEPRAZOLE MAGNESIUM
     Indication: GASTROOESOPHAGEAL REFLUX DISEASE
     Route: 048
     Dates: start: 20020916, end: 20100527
  18. PREVACID [Suspect]
     Active Substance: LANSOPRAZOLE
     Route: 048
  19. GLIPIZIDE. [Concomitant]
     Active Substance: GLIPIZIDE
  20. SENNOSIDES. [Concomitant]
     Active Substance: SENNOSIDES
  21. ATENOLOL. [Concomitant]
     Active Substance: ATENOLOL
  22. DOXAZOSIN [Concomitant]
     Active Substance: DOXAZOSIN MESYLATE
  23. FENOFIBRATE. [Concomitant]
     Active Substance: FENOFIBRATE
  24. SIMVASTATIN. [Concomitant]
     Active Substance: SIMVASTATIN
  25. PROTONIX [Suspect]
     Active Substance: PANTOPRAZOLE SODIUM
     Route: 065
     Dates: start: 20160812, end: 20160909
  26. GABAPENTIN. [Concomitant]
     Active Substance: GABAPENTIN
  27. DOXYCYCLINE. [Concomitant]
     Active Substance: DOXYCYCLINE
  28. UNIVASC [Concomitant]
     Active Substance: MOEXIPRIL HYDROCHLORIDE
  29. JANUVIA [Concomitant]
     Active Substance: SITAGLIPTIN PHOSPHATE
  30. PRILOSEC [Suspect]
     Active Substance: OMEPRAZOLE MAGNESIUM
     Route: 048
     Dates: start: 20020708, end: 20021016
  31. PREVACID 24 HR [Suspect]
     Active Substance: LANSOPRAZOLE
     Route: 065
     Dates: start: 20090515, end: 20171231
  32. PREVACID 24 HR [Suspect]
     Active Substance: LANSOPRAZOLE
     Dosage: PREVACID OTC
     Route: 065
     Dates: start: 20090515
  33. METOPROLOL TARTRATE. [Concomitant]
     Active Substance: METOPROLOL TARTRATE
  34. AMBIEN [Concomitant]
     Active Substance: ZOLPIDEM TARTRATE
  35. BUMETANIDE. [Concomitant]
     Active Substance: BUMETANIDE
  36. CIPROFLOXACIN. [Concomitant]
     Active Substance: CIPROFLOXACIN

REACTIONS (2)
  - Chronic kidney disease [Not Recovered/Not Resolved]
  - Acute kidney injury [Not Recovered/Not Resolved]

NARRATIVE: CASE EVENT DATE: 20170329
